FAERS Safety Report 8128570-0 (Version None)
Quarter: 2012Q1

REPORT INFORMATION
  Report Type: 
  Country: None (occurrence: None)
  Receive Date: 20120210
  Receipt Date: 20111221
  Transmission Date: 20120608
  Serious: No
  Sender: FDA-Public Use
  Company Number: US-BRISTOL-MYERS SQUIBB COMPANY-16273757

PATIENT
  Age: 53 Year
  Sex: Female

DRUGS (4)
  1. SYNTHROID [Concomitant]
  2. ORENCIA [Suspect]
     Indication: RHEUMATOID ARTHRITIS
     Route: 042
     Dates: start: 20110215, end: 20110607
  3. ARAVA [Concomitant]
     Route: 048
  4. FOSAMAX [Concomitant]

REACTIONS (7)
  - ONYCHOCLASIS [None]
  - OROPHARYNGEAL PAIN [None]
  - DYSPNOEA [None]
  - BLISTER [None]
  - BACK PAIN [None]
  - INFLUENZA LIKE ILLNESS [None]
  - WHEEZING [None]
